FAERS Safety Report 8500254-6 (Version None)
Quarter: 2012Q3

REPORT INFORMATION
  Report Type: 
  Country: None (occurrence: None)
  Receive Date: 20120710
  Receipt Date: 20120705
  Transmission Date: 20120928
  Serious: Yes (Hospitalization)
  Sender: FDA-Public Use
  Company Number: PHHO2012IT009721

PATIENT
  Sex: Male
  Weight: 65 kg

DRUGS (15)
  1. VALSARTAN [Suspect]
     Indication: CARDIAC FAILURE CHRONIC
     Dosage: DOUBLE BLINDED
     Route: 048
     Dates: start: 20100923, end: 20120618
  2. ENALAPRIL MALEATE [Suspect]
     Indication: CARDIAC FAILURE CHRONIC
     Dosage: DOUBLE BLINDED
     Route: 048
     Dates: start: 20100923, end: 20120618
  3. BLINDED NO TREATMENT RECEIVED [Suspect]
     Indication: CARDIAC FAILURE CHRONIC
     Dosage: DOUBLE BLINDED
     Route: 048
     Dates: start: 20100923, end: 20120618
  4. VALSARTAN [Suspect]
     Dosage: DOUBLE BLINDED
     Route: 048
     Dates: start: 20120628
  5. BLINDED NO TREATMENT RECEIVED [Suspect]
     Dosage: DOUBLE BLINDED
     Route: 048
     Dates: start: 20120628
  6. BETAMETHASONE [Suspect]
     Dosage: 4 MG, UNK
  7. THIOCOLCHICOSIDE [Suspect]
  8. OMEPRAZOLE [Concomitant]
     Indication: GASTROOESOPHAGEAL REFLUX DISEASE
     Dosage: 20 MG, QD
     Route: 048
     Dates: start: 20100101, end: 20120618
  9. METOPROLOL [Concomitant]
     Indication: CARDIAC FAILURE CHRONIC
     Dosage: 25 MG, BID
     Route: 048
     Dates: start: 20070101, end: 20120618
  10. ASPIRIN [Concomitant]
     Indication: PROPHYLAXIS
     Dosage: 100 MG, QD
     Route: 048
     Dates: start: 20070101, end: 20120618
  11. SIMVASTATIN [Concomitant]
     Indication: DYSLIPIDAEMIA
     Dosage: 20 MG, QD
     Route: 048
     Dates: start: 20070101, end: 20120618
  12. FUROSEMIDE [Concomitant]
     Indication: CARDIAC FAILURE CHRONIC
     Dosage: 25 MG, QD
     Route: 048
     Dates: start: 20070101, end: 20120618
  13. DICLOFENAC SODIUM [Suspect]
     Dosage: 75 MG, UNK
  14. TRAMADOL HCL [Suspect]
  15. ENALAPRIL MALEATE [Suspect]
     Dosage: DOUBLE BLINDED
     Route: 048
     Dates: start: 20120628

REACTIONS (1)
  - RECTAL HAEMORRHAGE [None]
